FAERS Safety Report 8485399-1 (Version None)
Quarter: 2012Q3

REPORT INFORMATION
  Report Type: 
  Country: None (occurrence: None)
  Receive Date: 20120703
  Receipt Date: 20120628
  Transmission Date: 20120928
  Serious: Yes (Other)
  Sender: FDA-Public Use
  Company Number: PHEH2012US012894

PATIENT
  Sex: Female

DRUGS (11)
  1. METFORMIN HCL [Concomitant]
     Indication: DIABETES MELLITUS
     Dosage: 500 MG, ONCE A DAY
     Route: 048
  2. EXFORGE [Suspect]
     Dosage: (320/5 MG), UNK
  3. PLAVIX [Concomitant]
     Indication: ANTICOAGULANT THERAPY
     Dosage: 75 MG, ONCE DAY
     Route: 048
  4. CLONIDINE [Concomitant]
     Indication: HYPERTENSION
     Dosage: 0.2 MG, TWICE A DAY
     Route: 048
  5. ADVAIR DISKUS 100/50 [Suspect]
     Indication: ASTHMA
     Dosage: (250/50 MG), TWICE A DAY
     Route: 048
  6. DICLOFENAC SODIUM [Concomitant]
     Indication: CARPAL TUNNEL SYNDROME
     Dosage: 75 MG, TWICE A DAY
     Route: 048
  7. SINGULAIR [Concomitant]
     Indication: ASTHMA
     Dosage: 10 MG, ONCE A DAY
     Route: 048
  8. LASIX [Concomitant]
     Indication: DIURETIC THERAPY
     Dosage: 40 MG, ONCE A DAY
     Route: 048
  9. EXFORGE [Suspect]
     Indication: HYPERTENSION
     Dosage: (320/10 MG), ONCE A DAY
     Route: 048
  10. LIPITOR [Concomitant]
     Indication: BLOOD CHOLESTEROL ABNORMAL
     Dosage: 40 MG, ONCE A DAY
     Route: 048
  11. METOPROLOL SUCCINATE [Concomitant]
     Indication: HYPERTENSION
     Dosage: 50 MG, ONCE A DAY
     Route: 048

REACTIONS (4)
  - ASTHMA [None]
  - OBSTRUCTION [None]
  - DYSPNOEA [None]
  - BLOOD PRESSURE INADEQUATELY CONTROLLED [None]
